FAERS Safety Report 8375176-4 (Version None)
Quarter: 2012Q2

REPORT INFORMATION
  Report Type: 
  Country: None (occurrence: None)
  Receive Date: 20120521
  Receipt Date: 20120514
  Transmission Date: 20120825
  Serious: Yes (Other)
  Sender: FDA-Public Use
  Company Number: PHHY2012KR041026

PATIENT
  Age: 56 Year
  Sex: Male

DRUGS (2)
  1. TRIAMCINOLONE [Suspect]
     Indication: DIABETIC RETINAL OEDEMA
     Dosage: 4 MG, ONCE/SINGLE
  2. BETADINE [Concomitant]
     Indication: EYE IRRIGATION

REACTIONS (4)
  - RETINITIS VIRAL [None]
  - NECROTISING RETINITIS [None]
  - CATARACT [None]
  - MACULAR FIBROSIS [None]
